FAERS Safety Report 16198802 (Version 1)
Quarter: 2019Q2

REPORT INFORMATION
  Report Type: Spontaneous
  Country: GB (occurrence: GB)
  Receive Date: 20190415
  Receipt Date: 20190415
  Transmission Date: 20190711
  Serious: Yes (Other)
  Sender: FDA-Public Use
  Company Number: GB-PFIZER INC-2019150740

PATIENT
  Age: 65 Year
  Sex: Male

DRUGS (2)
  1. IBUPROFEN. [Suspect]
     Active Substance: IBUPROFEN
     Dosage: 400 MG, UNK
     Route: 048
     Dates: start: 20181212, end: 20181212
  2. IBUPROFEN. [Suspect]
     Active Substance: IBUPROFEN
     Indication: LIMB INJURY
     Dosage: 400 MG, UNK
     Route: 048
     Dates: start: 20181210, end: 20181210

REACTIONS (3)
  - Blood pressure increased [Recovered/Resolved]
  - Eye haemorrhage [Unknown]
  - Vision blurred [Unknown]

NARRATIVE: CASE EVENT DATE: 20181212
